FAERS Safety Report 12219716 (Version 1)
Quarter: 2016Q1

REPORT INFORMATION
  Report Type: Report from Study
  Country: US (occurrence: US)
  Receive Date: 20160330
  Receipt Date: 20160330
  Transmission Date: 20160526
  Serious: No
  Sender: FDA-Public Use
  Company Number: PHEH2015US006231

PATIENT
  Sex: Female
  Weight: 57.14 kg

DRUGS (2)
  1. AFINITOR [Suspect]
     Active Substance: EVEROLIMUS
     Indication: BREAST CANCER FEMALE
     Dosage: 10 MG, QD
     Route: 048
     Dates: start: 20150319
  2. AFINITOR [Suspect]
     Active Substance: EVEROLIMUS
     Dosage: 7.5 MG
     Route: 065

REACTIONS (5)
  - Inflammation [Unknown]
  - Malaise [Unknown]
  - Dyspnoea [Unknown]
  - Cough [Unknown]
  - Stomatitis [Unknown]
